FAERS Safety Report 9225034 (Version 1)
Quarter: 2013Q2

REPORT INFORMATION
  Report Type: Spontaneous
  Country: US (occurrence: US)
  Receive Date: 20130411
  Receipt Date: 20130411
  Transmission Date: 20140414
  Serious: Yes (Other)
  Sender: FDA-Public Use
  Company Number: US-JNJFOC-20130400523

PATIENT
  Age: 14 Year
  Sex: Male
  Weight: 49.9 kg

DRUGS (3)
  1. INVEGA [Suspect]
     Indication: HALLUCINATIONS, MIXED
     Route: 048
     Dates: start: 201303
  2. DEPAKOTE [Concomitant]
     Indication: MANIA
     Route: 048
     Dates: start: 201303
  3. DEPAKOTE [Concomitant]
     Indication: AFFECTIVE DISORDER
     Route: 048
     Dates: start: 201303

REACTIONS (2)
  - Hallucination [Recovered/Resolved]
  - Drug dose omission [Not Recovered/Not Resolved]
